FAERS Safety Report 7878358-0 (Version None)
Quarter: 2011Q4

REPORT INFORMATION
  Report Type: 
  Country: None (occurrence: None)
  Receive Date: 20111101
  Receipt Date: 20111025
  Transmission Date: 20120403
  Serious: Yes (Hospitalization)
  Sender: FDA-Public Use
  Company Number: US-JNJFOC-20111011681

PATIENT
  Age: 15 Year
  Sex: Female

DRUGS (4)
  1. TYLENOL-500 [Suspect]
     Route: 048
  2. TYLENOL-500 [Suspect]
     Indication: SUICIDE ATTEMPT
     Route: 048
  3. MIDOL COMPLETE CAPLETS [Suspect]
     Indication: SUICIDE ATTEMPT
     Route: 048
  4. IBUPROFEN (ADVIL) [Suspect]
     Indication: SUICIDE ATTEMPT
     Route: 048

REACTIONS (13)
  - SUICIDE ATTEMPT [None]
  - DEPRESSED MOOD [None]
  - PCO2 DECREASED [None]
  - INTENTIONAL OVERDOSE [None]
  - MULTIPLE DRUG OVERDOSE INTENTIONAL [None]
  - ANXIETY [None]
  - CHILLS [None]
  - BLOOD GLUCOSE INCREASED [None]
  - ELECTROCARDIOGRAM QT PROLONGED [None]
  - BODY TEMPERATURE DECREASED [None]
  - HEART RATE INCREASED [None]
  - BLOOD BICARBONATE DECREASED [None]
  - PO2 DECREASED [None]
